FAERS Safety Report 10027623 (Version 1)
Quarter: 2014Q1

REPORT INFORMATION
  Report Type: Spontaneous
  Country: CA (occurrence: CA)
  Receive Date: 20140321
  Receipt Date: 20140321
  Transmission Date: 20141002
  Serious: Yes (Hospitalization, Other)
  Sender: FDA-Public Use
  Company Number: CA-MERCK-1403CAN009819

PATIENT
  Age: 59 Year
  Sex: Female

DRUGS (2)
  1. JANUVIA [Suspect]
     Dosage: 100 MG, QD
     Route: 048
     Dates: start: 2011
  2. OLMETEC PLUS [Suspect]
     Dosage: 40/25 MG
     Route: 048
     Dates: start: 2011

REACTIONS (3)
  - Myocardial infarction [Unknown]
  - Stent placement [Unknown]
  - Coronary artery occlusion [Unknown]
